FAERS Safety Report 24248521 (Version 16)
Quarter: 2025Q2

REPORT INFORMATION
  Report Type: Report from Study
  Country: CA (occurrence: CA)
  Receive Date: 20240826
  Receipt Date: 20250421
  Transmission Date: 20250716
  Serious: Yes (Hospitalization, Other)
  Sender: BIOCON
  Company Number: CA-MYLANLABS-2023M1086142

PATIENT

DRUGS (13)
  1. HULIO [Suspect]
     Active Substance: ADALIMUMAB-FKJP
     Indication: Ankylosing spondylitis
     Dosage: 40 MILLIGRAM, Q2W
     Route: 058
     Dates: start: 20230809
  2. HULIO [Suspect]
     Active Substance: ADALIMUMAB-FKJP
     Route: 058
  3. HULIO [Suspect]
     Active Substance: ADALIMUMAB-FKJP
     Dosage: 40 MG, Q2W
     Route: 058
  4. HULIO [Suspect]
     Active Substance: ADALIMUMAB-FKJP
     Route: 058
  5. HULIO [Suspect]
     Active Substance: ADALIMUMAB-FKJP
     Dosage: UNK UNK, Q2W
     Route: 058
     Dates: start: 20230809
  6. HULIO [Suspect]
     Active Substance: ADALIMUMAB-FKJP
     Route: 065
  7. HULIO [Suspect]
     Active Substance: ADALIMUMAB-FKJP
     Route: 065
     Dates: start: 20240812
  8. HULIO [Suspect]
     Active Substance: ADALIMUMAB-FKJP
     Dosage: 40 MILLIGRAM, Q2W
     Route: 058
     Dates: start: 20230829
  9. HULIO [Suspect]
     Active Substance: ADALIMUMAB-FKJP
     Route: 065
     Dates: start: 20241229
  10. HULIO [Suspect]
     Active Substance: ADALIMUMAB-FKJP
     Route: 065
     Dates: start: 20250111
  11. HULIO [Suspect]
     Active Substance: ADALIMUMAB-FKJP
     Route: 058
     Dates: start: 20230809
  12. HULIO [Suspect]
     Active Substance: ADALIMUMAB-FKJP
     Dosage: 40 MG, Q2W
     Route: 065
  13. TAMSULOSIN [Concomitant]
     Active Substance: TAMSULOSIN
     Indication: Product used for unknown indication
     Dosage: 0.4 MILLIGRAM, QD (DAILY FOR 14 DAYS)
     Route: 048
     Dates: start: 20250115

REACTIONS (15)
  - Nephrolithiasis [Unknown]
  - Intestinal obstruction [Unknown]
  - Gastrointestinal polyp [Unknown]
  - Inflammation [Unknown]
  - Urinary incontinence [Unknown]
  - Bladder pain [Unknown]
  - Post procedural complication [Unknown]
  - Pain [Unknown]
  - Fatigue [Unknown]
  - Urinary tract infection [Unknown]
  - Headache [Unknown]
  - Nausea [Unknown]
  - Product administered at inappropriate site [Unknown]
  - Inappropriate schedule of product administration [Unknown]
  - Off label use [Unknown]

NARRATIVE: CASE EVENT DATE: 20230809
